FAERS Safety Report 8547190-7 (Version None)
Quarter: 2012Q3

REPORT INFORMATION
  Report Type: 
  Country: None (occurrence: None)
  Receive Date: 20120727
  Receipt Date: 20120224
  Transmission Date: 20120928
  Serious: No
  Sender: FDA-Public Use
  Company Number: US-ASTRAZENECA-2012SE13252

PATIENT
  Sex: Female

DRUGS (2)
  1. ANTIDEPRESSANT [Concomitant]
  2. SEROQUEL [Suspect]
     Indication: HALLUCINATION, AUDITORY
     Route: 048

REACTIONS (2)
  - FATIGUE [None]
  - OFF LABEL USE [None]
